FAERS Safety Report 14968696 (Version 1)
Quarter: 2018Q2

REPORT INFORMATION
  Report Type: Spontaneous
  Country: US (occurrence: US)
  Receive Date: 20180604
  Receipt Date: 20180604
  Transmission Date: 20180711
  Serious: No
  Sender: FDA-Public Use
  Company Number: US-SUNOVION-2018SUN002077

PATIENT
  Age: 76 Year
  Sex: Male
  Weight: 77.55 kg

DRUGS (1)
  1. LONHALA MAGNAIR [Suspect]
     Active Substance: GLYCOPYRROLATE
     Indication: CHRONIC OBSTRUCTIVE PULMONARY DISEASE
     Dosage: 25 ?G/ML, UNK
     Route: 055
     Dates: start: 201805

REACTIONS (3)
  - Oropharyngeal pain [Unknown]
  - Wrong technique in product usage process [Unknown]
  - Cough [Unknown]

NARRATIVE: CASE EVENT DATE: 201805
